FAERS Safety Report 7722929-9 (Version None)
Quarter: 2011Q3

REPORT INFORMATION
  Report Type: 
  Country: None (occurrence: None)
  Receive Date: 20110826
  Receipt Date: 20110815
  Transmission Date: 20111222
  Serious: Yes (Hospitalization, Other)
  Sender: FDA-Public Use
  Company Number: CL-336-2011

PATIENT
  Age: 50 Year
  Sex: Male
  Weight: 85 kg

DRUGS (8)
  1. METRONIDAZOLE [Suspect]
     Indication: APPENDIX DISORDER
     Dosage: 40 MG TDS, ORAL
     Route: 048
  2. METRONIDAZOLE [Suspect]
     Indication: ABSCESS
     Dosage: 40 MG TDS, ORAL
     Route: 048
  3. CEFOTAXIME [Suspect]
     Indication: ABSCESS
     Dosage: 1G TDS, IV
     Route: 042
  4. CEFOTAXIME [Suspect]
     Indication: APPENDIX DISORDER
     Dosage: 1G TDS, IV
     Route: 042
  5. METRONIDAZOLE [Suspect]
     Indication: ABSCESS
     Dosage: 1G OD IV, INTRAVENOUS
     Route: 042
  6. METRONIDAZOLE [Suspect]
     Indication: APPENDIX DISORDER
     Dosage: 1G OD IV, INTRAVENOUS
     Route: 042
  7. CIPROFLOXACIN [Suspect]
     Indication: APPENDIX DISORDER
     Dosage: 500 MG, BID, ORAL
     Route: 048
  8. CIPROFLOXACIN [Suspect]
     Indication: ABSCESS
     Dosage: 500 MG, BID, ORAL
     Route: 048

REACTIONS (9)
  - DEAFNESS [None]
  - VOMITING [None]
  - DYSARTHRIA [None]
  - ENCEPHALOPATHY [None]
  - DIZZINESS [None]
  - ATAXIA [None]
  - DRUG INTERACTION [None]
  - FATIGUE [None]
  - LOSS OF CONSCIOUSNESS [None]
